FAERS Safety Report 15122705 (Version 2)
Quarter: 2018Q3

REPORT INFORMATION
  Report Type: Report from Study
  Country: None (occurrence: US)
  Receive Date: 20180709
  Receipt Date: 20180716
  Transmission Date: 20181010
  Serious: Yes (Hospitalization, Other)
  Sender: FDA-Public Use
  Company Number: US-BAUSCH-BL-2018-018695

PATIENT
  Sex: Female

DRUGS (2)
  1. XIFAXAN [Suspect]
     Active Substance: RIFAXIMIN
     Indication: OFF LABEL USE
  2. XIFAXAN [Suspect]
     Active Substance: RIFAXIMIN
     Indication: DIARRHOEA
     Dosage: FOR 7 DAYS
     Route: 065

REACTIONS (6)
  - Brain oedema [Unknown]
  - Gastrointestinal infection [Unknown]
  - Treatment noncompliance [Unknown]
  - Hospitalisation [Unknown]
  - Lung infection [Unknown]
  - Off label use [Unknown]
